FAERS Safety Report 6233316-7 (Version None)
Quarter: 2009Q2

REPORT INFORMATION
  Report Type: 
  Country: None (occurrence: None)
  Receive Date: 20090617
  Receipt Date: 20090605
  Transmission Date: 20091009
  Serious: Yes (Other)
  Sender: FDA-Public Use
  Company Number: US-WYE-H09638809

PATIENT
  Sex: Female

DRUGS (3)
  1. TORISEL [Suspect]
     Indication: RENAL CELL CARCINOMA
     Route: 042
     Dates: start: 20090526, end: 20090526
  2. TORISEL [Suspect]
     Route: 042
     Dates: start: 20090601, end: 20090601
  3. TORISEL [Suspect]
     Dosage: DOSE NOT SPECIFIED
     Route: 042
     Dates: start: 20090601, end: 20090601

REACTIONS (3)
  - FLUSHING [None]
  - INFUSION RELATED REACTION [None]
  - THROAT TIGHTNESS [None]
